FAERS Safety Report 8351900-1 (Version None)
Quarter: 2012Q2

REPORT INFORMATION
  Report Type: 
  Country: None (occurrence: None)
  Receive Date: 20120511
  Receipt Date: 20120509
  Transmission Date: 20120825
  Serious: No
  Sender: FDA-Public Use
  Company Number: US-PFIZER INC-2012113615

PATIENT
  Sex: Male
  Weight: 98 kg

DRUGS (5)
  1. VERAPAMIL [Concomitant]
     Indication: HYPERTENSION
     Dosage: 100 MG, UNK
  2. SUTENT [Suspect]
     Indication: RENAL CANCER
     Dosage: 50 MG, 1X/DAY
     Route: 048
     Dates: start: 20120301
  3. LOSARTAN [Concomitant]
     Indication: HYPERTENSION
     Dosage: UNK
  4. SIMVASTATIN [Concomitant]
     Indication: BLOOD CHOLESTEROL INCREASED
     Dosage: UNK
  5. TAMSULOSIN [Concomitant]
     Indication: PROSTATIC DISORDER
     Dosage: UNK

REACTIONS (4)
  - HYPERTENSION [None]
  - PAIN IN EXTREMITY [None]
  - HYPERKERATOSIS [None]
  - SKIN DISORDER [None]
